FAERS Safety Report 4805696-8 (Version None)
Quarter: 2005Q4

REPORT INFORMATION
  Report Type: 
  Country: None (occurrence: None)
  Receive Date: 20051018
  Receipt Date: 20051010
  Transmission Date: 20060501
  Serious: Yes (Death)
  Sender: FDA-Public Use
  Company Number: 218443

PATIENT
  Age: 62 Year
  Sex: Male

DRUGS (3)
  1. AVASTIN [Suspect]
     Indication: PANCREATIC CARCINOMA
     Dosage: 10 MG/KG, DAYS 1,8,15, INTRAVENOUS
     Route: 042
     Dates: start: 20050901, end: 20050915
  2. ERLOTINIB (ERLOTINIB) TABLET, 150MG [Suspect]
     Indication: PANCREATIC CARCINOMA
     Dosage: 150 MG, QDX5D/28DC, ORAL
     Route: 048
     Dates: start: 20050901, end: 20050925
  3. GEMCITABINE (GEMCITABINE HYDROCHLORIDE) [Suspect]
     Indication: PANCREATIC CARCINOMA
     Dosage: 1000 MG/M2, DAYS 1,8,15, INTRAVENOUS
     Route: 042
     Dates: start: 20050901, end: 20050915

REACTIONS (11)
  - ABDOMINAL DISTENSION [None]
  - ABDOMINAL PAIN [None]
  - ASPIRATION [None]
  - ASTHENIA [None]
  - CARDIAC ARREST [None]
  - DEPRESSED LEVEL OF CONSCIOUSNESS [None]
  - HICCUPS [None]
  - NAUSEA [None]
  - ORAL INTAKE REDUCED [None]
  - SUDDEN DEATH [None]
  - VOMITING [None]
